FAERS Safety Report 4705319-2 (Version None)
Quarter: 2005Q2

REPORT INFORMATION
  Report Type: 
  Country: None (occurrence: None)
  Receive Date: 20050629
  Receipt Date: 20050619
  Transmission Date: 20051028
  Serious: No
  Sender: FDA-Public Use
  Company Number: TRP_0037_2004

PATIENT
  Age: 36 Year
  Sex: Female

DRUGS (6)
  1. RIBASPHERE [Suspect]
     Indication: HEPATITIS C
     Dosage: 1200 MG QDAY PO
     Route: 048
     Dates: start: 20041014
  2. INTERFERON ALFACON-1/INTERMUNE/9 MCG [Suspect]
     Indication: HEPATITIS C
     Dosage: 9 MCG QDAY SC
     Route: 058
     Dates: start: 20041014
  3. GLUCOPHAGE [Concomitant]
  4. GLUCOTROL [Concomitant]
  5. HYDROCHLOROTHIAZIDE [Concomitant]
  6. ENALAPRIL MALEATE [Concomitant]

REACTIONS (2)
  - BLOOD URIC ACID INCREASED [None]
  - DRUG TOXICITY [None]
